FAERS Safety Report 20227447 (Version 2)
Quarter: 2022Q1

REPORT INFORMATION
  Report Type: Report from Study
  Country: US (occurrence: US)
  Receive Date: 20211224
  Receipt Date: 20220121
  Transmission Date: 20220423
  Serious: Yes (Hospitalization)
  Sender: FDA-Public Use
  Company Number: US-VERTEX PHARMACEUTICALS-2021-020030

PATIENT
  Age: 20 Year
  Sex: Female

DRUGS (19)
  1. TRIKAFTA [Suspect]
     Active Substance: ELEXACAFTOR\IVACAFTOR\TEZACAFTOR
     Indication: Cystic fibrosis
     Dosage: 2 ORANGE TAB AM AND 1 BLUE TAB PM
     Route: 048
     Dates: start: 20200129
  2. ALVESCO [Concomitant]
     Active Substance: CICLESONIDE
  3. AZELASTINE HYDROCHLORIDE\FLUTICASONE PROPIONATE [Concomitant]
     Active Substance: AZELASTINE HYDROCHLORIDE\FLUTICASONE PROPIONATE
     Dosage: SPR 137-50
  4. AZELASTINE HYDROCHLORIDE [Concomitant]
     Active Substance: AZELASTINE HYDROCHLORIDE
  5. AZITHROMYCIN [Concomitant]
     Active Substance: AZITHROMYCIN
  6. CREON [Concomitant]
     Active Substance: PANCRELIPASE AMYLASE\PANCRELIPASE LIPASE\PANCRELIPASE PROTEASE
     Dosage: 24000UNIT
  7. FAMOTIDINE [Concomitant]
     Active Substance: FAMOTIDINE
  8. LEVALBUTEROL [Concomitant]
     Active Substance: LEVALBUTEROL
  9. LEVALBUTEROL HYDROCHLORIDE [Concomitant]
     Active Substance: LEVALBUTEROL HYDROCHLORIDE
  10. LEVALBUTEROL TARTRATE [Concomitant]
     Active Substance: LEVALBUTEROL TARTRATE
  11. MONTELUKAST SODIUM [Concomitant]
     Active Substance: MONTELUKAST SODIUM
  12. PANTOPRAZOLE SODIUM [Concomitant]
     Active Substance: PANTOPRAZOLE SODIUM
  13. PANTOPRAZOLE SODIUM [Concomitant]
     Active Substance: PANTOPRAZOLE SODIUM
  14. PULMOZYME [Concomitant]
     Active Substance: DORNASE ALFA
  15. SODIUM SULFACETAMIDE + SULFUR [Concomitant]
     Dosage: 10-5% LIQ
  16. SODIUM CHLORIDE [Concomitant]
     Active Substance: SODIUM CHLORIDE
  17. TOBI PODHALER [Concomitant]
     Active Substance: TOBRAMYCIN
  18. URSODIOL [Concomitant]
     Active Substance: URSODIOL
  19. RETINOL [Concomitant]
     Active Substance: RETINOL

REACTIONS (1)
  - Gastric fistula repair [Recovered/Resolved]

NARRATIVE: CASE EVENT DATE: 20211209
